FAERS Safety Report 5417002-9 (Version None)
Quarter: 2007Q3

REPORT INFORMATION
  Report Type: 
  Country: None (occurrence: None)
  Receive Date: 20070816
  Receipt Date: 20070813
  Transmission Date: 20080115
  Serious: Yes (Hospitalization)
  Sender: FDA-Public Use
  Company Number: SE-ASTRAZENECA-2007SE04397

PATIENT
  Age: 997 Month
  Sex: Male

DRUGS (5)
  1. CASODEX [Suspect]
     Indication: PROSTATE CANCER
     Route: 048
     Dates: start: 20060501, end: 20060701
  2. LANACRIST [Concomitant]
  3. MODURETIC MITE [Concomitant]
     Dosage: 2.5 MG / 25 MG
  4. FLUNITRAZEPAM MERCH NM [Concomitant]
  5. ADALAT [Concomitant]

REACTIONS (2)
  - DIABETES MELLITUS [None]
  - POLYMYALGIA RHEUMATICA [None]
